FAERS Safety Report 8524311-3 (Version None)
Quarter: 2012Q3

REPORT INFORMATION
  Report Type: 
  Country: None (occurrence: None)
  Receive Date: 20120720
  Receipt Date: 20120718
  Transmission Date: 20120928
  Serious: Yes (Death)
  Sender: FDA-Public Use
  Company Number: US-PFIZER INC-2012174052

PATIENT
  Sex: Female
  Weight: 62.585 kg

DRUGS (1)
  1. TIKOSYN [Suspect]
     Indication: SUPRAVENTRICULAR TACHYCARDIA
     Dosage: 500 2X/DAY
     Dates: start: 20111201, end: 20120624

REACTIONS (1)
  - CARDIAC DISORDER [None]
